FAERS Safety Report 7675270-7 (Version None)
Quarter: 2011Q3

REPORT INFORMATION
  Report Type: 
  Country: None (occurrence: None)
  Receive Date: 20110810
  Receipt Date: 20110801
  Transmission Date: 20111222
  Serious: No
  Sender: FDA-Public Use
  Company Number: US-ASTRAZENECA-2010SE22847

PATIENT
  Age: 80 Year
  Sex: Female

DRUGS (3)
  1. NEXIUM [Suspect]
     Indication: GASTRIC DISORDER
     Route: 048
  2. COUMADIN [Concomitant]
  3. PRILOSEC OTC [Suspect]
     Route: 048

REACTIONS (17)
  - JOINT INJURY [None]
  - ARTHRITIS [None]
  - DRUG DOSE OMISSION [None]
  - PAIN [None]
  - THROAT IRRITATION [None]
  - JOINT DISLOCATION [None]
  - PAIN IN EXTREMITY [None]
  - MUSCULOSKELETAL PAIN [None]
  - VOMITING [None]
  - MALAISE [None]
  - DRUG INEFFECTIVE [None]
  - WEIGHT DECREASED [None]
  - FALL [None]
  - DYSPNOEA [None]
  - NASOPHARYNGITIS [None]
  - COUGH [None]
  - ROTATOR CUFF SYNDROME [None]
